FAERS Safety Report 5387576-5 (Version None)
Quarter: 2007Q3

REPORT INFORMATION
  Report Type: 
  Country: None (occurrence: None)
  Receive Date: 20070711
  Receipt Date: 20070711
  Transmission Date: 20080115
  Serious: Yes (Life-Threatening)
  Sender: FDA-Public Use
  Company Number: None

PATIENT
  Age: 36 Year
  Weight: 95.2554 kg

DRUGS (1)
  1. BUDEPRION XL 300 MG TEVA [Suspect]
     Indication: MAJOR DEPRESSION
     Dosage: 300MG DAILY PO
     Route: 048
     Dates: start: 20070301, end: 20070501

REACTIONS (8)
  - ANXIETY [None]
  - CONDITION AGGRAVATED [None]
  - DEPRESSION [None]
  - DRUG INEFFECTIVE [None]
  - SUICIDAL IDEATION [None]
  - TENSION HEADACHE [None]
  - THERAPEUTIC RESPONSE UNEXPECTED WITH DRUG SUBSTITUTION [None]
  - TIC [None]
